FAERS Safety Report 6506895-X (Version None)
Quarter: 2009Q4

REPORT INFORMATION
  Report Type: 
  Country: None (occurrence: None)
  Receive Date: 20091221
  Receipt Date: 20091210
  Transmission Date: 20100525
  Serious: Yes (Death)
  Sender: FDA-Public Use
  Company Number: JP-WYE-H12650109

PATIENT
  Age: 54 Year
  Sex: Female

DRUGS (7)
  1. ANCARON [Suspect]
     Indication: VENTRICULAR TACHYCARDIA
     Route: 048
     Dates: start: 20071027
  2. RENIVACE [Concomitant]
     Dosage: UNSPECIFIED
     Dates: start: 20071023
  3. LASIX [Concomitant]
     Dosage: UNSPECIFIED
     Dates: start: 20071023
  4. ALDACTONE [Concomitant]
     Dosage: UNSPECIFIED
     Dates: start: 20071023
  5. AMIODARONE [Suspect]
     Indication: VENTRICULAR TACHYCARDIA
     Dosage: 1.25 MG (FREQUENCY UNSPECIFIED)
     Route: 041
     Dates: start: 20071024, end: 20071025
  6. AMIODARONE [Suspect]
     Dosage: 1.5 MG (FREQUENCY UNSPECIFIED)
     Route: 041
     Dates: start: 20071025, end: 20071027
  7. ASPIRIN [Concomitant]
     Dosage: UNSPECIFIED
     Dates: start: 20071023

REACTIONS (1)
  - DEATH [None]
